FAERS Safety Report 21340161 (Version 1)
Quarter: 2022Q3

REPORT INFORMATION
  Report Type: Spontaneous
  Country: US (occurrence: US)
  Receive Date: 20220916
  Receipt Date: 20220916
  Transmission Date: 20221027
  Serious: Yes (Hospitalization, Other)
  Sender: FDA-Public Use
  Company Number: US-STRIDES ARCOLAB LIMITED-2021SP031693

PATIENT
  Age: 12 Month
  Sex: Male

DRUGS (1)
  1. ACARBOSE [Suspect]
     Active Substance: ACARBOSE
     Indication: Hypoglycaemia
     Dosage: UNK
     Route: 065

REACTIONS (1)
  - Drug ineffective for unapproved indication [Unknown]
